FAERS Safety Report 20715527 (Version 1)
Quarter: 2022Q2

REPORT INFORMATION
  Report Type: Spontaneous
  Country: US (occurrence: US)
  Receive Date: 20220415
  Receipt Date: 20220415
  Transmission Date: 20220721
  Serious: No
  Sender: FDA-Public Use
  Company Number: US-ALLERGAN-2124379US

PATIENT
  Sex: Female
  Weight: 68.481 kg

DRUGS (1)
  1. LILETTA [Suspect]
     Active Substance: LEVONORGESTREL
     Indication: Menstruation irregular
     Dosage: 52 MG, SINGLE
     Route: 015
     Dates: start: 20210405

REACTIONS (5)
  - Pelvic fluid collection [Unknown]
  - Off label use [Unknown]
  - Device expulsion [Unknown]
  - Intermenstrual bleeding [Recovered/Resolved]
  - Amenorrhoea [Not Recovered/Not Resolved]

NARRATIVE: CASE EVENT DATE: 20210101
